FAERS Safety Report 8935811 (Version 4)
Quarter: 2013Q2

REPORT INFORMATION
  Report Type: Report from Study
  Country: JP (occurrence: JP)
  Receive Date: 20121130
  Receipt Date: 20130501
  Transmission Date: 20140414
  Serious: Yes (Hospitalization, Other)
  Sender: FDA-Public Use
  Company Number: JP-PFIZER INC-2012292542

PATIENT
  Age: 64 Year
  Sex: Female
  Weight: 58.3 kg

DRUGS (12)
  1. FOSPHENYTOIN SODIUM [Suspect]
     Indication: PROPHYLAXIS
     Dosage: 7.7 MG/KG AT 15MG/MIN IN 0.9% PHYSIOLOGICAL SALINE AT A DILUTION OF 1:16
     Dates: start: 20120920
  2. CEFAMEZINE ALPHA [Concomitant]
     Indication: PROPHYLAXIS
     Dosage: 2G, UNK
     Dates: start: 20120920, end: 20120926
  3. ANAPEINE [Concomitant]
     Indication: ANAESTHESIA
     Dosage: 97.5MG, UNK
     Dates: start: 20120920
  4. LIDOCAINE [Concomitant]
     Indication: ANAESTHESIA
     Dosage: 130 MG, UNK
     Dates: start: 20120920
  5. PROPOFOL [Concomitant]
     Indication: ANAESTHESIA
     Dosage: 12 ?G, UNK
     Dates: start: 20120920
  6. ULTIVA [Concomitant]
     Indication: ANAESTHESIA
     Dosage: 72 MG, UNK
     Dates: start: 20120920
  7. MERISLON [Concomitant]
     Indication: DIZZINESS
     Dosage: 18 ?G, UNK
     Route: 048
     Dates: start: 20120912
  8. FENTANYL CITRATE [Concomitant]
     Indication: ANAESTHESIA
     Dosage: 2 ML INJ
     Dates: start: 20120920
  9. GRANDAXIN [Concomitant]
     Indication: AUTONOMIC NERVOUS SYSTEM IMBALANCE
     Dosage: 150MG, UNK
     Route: 048
     Dates: start: 20120912
  10. ECARD [Concomitant]
     Dosage: 1 TABLET, UNK
     Route: 048
     Dates: start: 20120912
  11. AMLODIN [Concomitant]
     Dosage: 5 MG, UNK
     Route: 048
     Dates: start: 20120912
  12. CARDENALIN [Concomitant]
     Dosage: 4MG ,UNK
     Route: 048

REACTIONS (4)
  - Aphasia [Recovering/Resolving]
  - Hemiplegia [Recovering/Resolving]
  - Hypoproteinaemia [Recovered/Resolved]
  - C-reactive protein increased [Recovered/Resolved]
